FAERS Safety Report 8356300-6 (Version None)
Quarter: 2012Q2

REPORT INFORMATION
  Report Type: 
  Country: None (occurrence: None)
  Receive Date: 20120514
  Receipt Date: 20120503
  Transmission Date: 20120825
  Serious: Yes (Other)
  Sender: FDA-Public Use
  Company Number: PE-JNJFOC-20120408381

PATIENT
  Age: 90 Year
  Sex: Female

DRUGS (6)
  1. XARELTO [Suspect]
     Indication: ATRIAL FIBRILLATION
     Route: 048
     Dates: start: 20120401, end: 20120401
  2. XARELTO [Suspect]
     Route: 048
     Dates: start: 20120201, end: 20120401
  3. DIGOXIN [Concomitant]
     Indication: ATRIAL FIBRILLATION
     Route: 048
     Dates: start: 20120401, end: 20120401
  4. ASPIRIN [Concomitant]
     Route: 048
     Dates: start: 20120401
  5. PREDNISONE TAB [Concomitant]
     Route: 048
     Dates: start: 20120401
  6. XARELTO [Suspect]
     Route: 048
     Dates: start: 20111201, end: 20120201

REACTIONS (3)
  - HAEMATOMA [None]
  - STAPHYLOCOCCAL SKIN INFECTION [None]
  - PEMPHIGUS [None]
